FAERS Safety Report 5890508-4 (Version None)
Quarter: 2008Q3

REPORT INFORMATION
  Report Type: 
  Country: None (occurrence: None)
  Receive Date: 20080922
  Receipt Date: 20080915
  Transmission Date: 20090109
  Serious: Yes (Other)
  Sender: FDA-Public Use
  Company Number: PHHY2008BR21877

PATIENT
  Age: 14 Year
  Sex: Female
  Weight: 60 kg

DRUGS (4)
  1. TOFRANIL [Suspect]
     Dosage: UNK
     Route: 048
     Dates: start: 20080915
  2. PHENOBARBITAL TAB [Suspect]
     Dosage: UNK
     Route: 048
     Dates: start: 20080915
  3. TRYPTOPHAN [Suspect]
     Dosage: UNK
     Route: 048
     Dates: start: 20080915
  4. OXYBUTYIN CHLORIDE [Suspect]
     Dosage: UNK
     Route: 048
     Dates: start: 20080915

REACTIONS (1)
  - SUICIDE ATTEMPT [None]
